FAERS Safety Report 6097719-6 (Version None)
Quarter: 2009Q1

REPORT INFORMATION
  Report Type: 
  Country: None (occurrence: None)
  Receive Date: 20090227
  Receipt Date: 20080526
  Transmission Date: 20090719
  Serious: Yes (Hospitalization)
  Sender: FDA-Public Use
  Company Number: FR-PFIZER INC-2009155113

PATIENT

DRUGS (4)
  1. IRINOTECAN HCL [Suspect]
     Indication: COLORECTAL CANCER
     Dosage: 315 MG, CYCLIC
     Dates: start: 20030929, end: 20030929
  2. FOLINIC ACID [Suspect]
     Indication: COLORECTAL CANCER
     Dosage: 350 MG
     Dates: start: 20030929, end: 20030929
  3. FLUOROURACIL [Suspect]
     Indication: COLORECTAL CANCER
     Dosage: 700 MG, CYCLIC
     Route: 040
     Dates: start: 20030929, end: 20030929
  4. FLUOROURACIL [Suspect]
     Dosage: 4200 MG, CYCLIC
     Route: 042
     Dates: start: 20030929, end: 20030930

REACTIONS (3)
  - DEHYDRATION [None]
  - DYSPNOEA [None]
  - GENERAL PHYSICAL HEALTH DETERIORATION [None]
